FAERS Safety Report 5603322-1 (Version None)
Quarter: 2008Q1

REPORT INFORMATION
  Report Type: 
  Country: None (occurrence: None)
  Receive Date: 20080122
  Receipt Date: 20080103
  Transmission Date: 20080703
  Serious: Yes (Other)
  Sender: FDA-Public Use
  Company Number: 2008-GWUS-0024

PATIENT
  Age: 34 Year
  Sex: Female

DRUGS (1)
  1. FLECAINIDE ACETATE [Suspect]
     Indication: SUPRAVENTRICULAR TACHYCARDIA
     Dosage: PO
     Route: 048

REACTIONS (8)
  - ARRHYTHMIA [None]
  - DRUG LEVEL ABOVE THERAPEUTIC [None]
  - ELECTROCARDIOGRAM QT PROLONGED [None]
  - HEART RATE DECREASED [None]
  - HYPOTENSION [None]
  - INTENTIONAL OVERDOSE [None]
  - METABOLIC ACIDOSIS [None]
  - PULSE PRESSURE DECREASED [None]
